FAERS Safety Report 4290183-9 (Version None)
Quarter: 2004Q1

REPORT INFORMATION
  Report Type: 
  Country: None (occurrence: None)
  Receive Date: 20040209
  Receipt Date: 20011010
  Transmission Date: 20041129
  Serious: No
  Sender: FDA-Public Use
  Company Number: E128556

PATIENT
  Age: 72 Year
  Sex: Female

DRUGS (2)
  1. (CLOPIDOGREL / ASPIRIN) - TABLET [Suspect]
     Indication: ISCHAEMIC STROKE
     Dosage: 75 MG CLOPIDOGREL + 75 MG ASPIRIN DAILY ORAL
     Route: 048
     Dates: start: 20010608, end: 20011009
  2. (CLOPIDOGREL / ASPIRIN) - TABLET [Suspect]
     Indication: TRANSIENT ISCHAEMIC ATTACK
     Dosage: 75 MG CLOPIDOGREL + 75 MG ASPIRIN DAILY ORAL
     Route: 048
     Dates: start: 20010608, end: 20011009

REACTIONS (1)
  - BLADDER CANCER STAGE 0, WITH CANCER IN SITU [None]
